FAERS Safety Report 6893692-9 (Version None)
Quarter: 2010Q3

REPORT INFORMATION
  Report Type: 
  Country: None (occurrence: None)
  Receive Date: 20100731
  Receipt Date: 20091229
  Transmission Date: 20110219
  Serious: No
  Sender: FDA-Public Use
  Company Number: US-PFIZER INC-2008041522

PATIENT
  Sex: Female
  Weight: 57.6 kg

DRUGS (4)
  1. NEURONTIN [Suspect]
     Indication: BACK PAIN
     Dosage: 1600 MG, 4X/DAY
     Route: 048
     Dates: start: 19980101
  2. GABAPENTIN [Suspect]
     Dosage: UNK
     Route: 048
     Dates: start: 20050101, end: 20050101
  3. PROSTIGMIN BROMIDE [Concomitant]
     Indication: MYASTHENIA GRAVIS
  4. CELEBREX [Concomitant]
     Indication: BACK PAIN
     Dosage: 200 MG, 1X/DAY
     Route: 048

REACTIONS (6)
  - BLOOD CHOLESTEROL INCREASED [None]
  - DRUG DISPENSING ERROR [None]
  - DYSPEPSIA [None]
  - GASTROINTESTINAL DISORDER [None]
  - HEADACHE [None]
  - MIGRAINE [None]
